FAERS Safety Report 7788082-0 (Version None)
Quarter: 2011Q3

REPORT INFORMATION
  Report Type: 
  Country: None (occurrence: None)
  Receive Date: 20110927
  Receipt Date: 20110912
  Transmission Date: 20111222
  Serious: Yes (Other)
  Sender: FDA-Public Use
  Company Number: AUR-APL-2011-00829

PATIENT
  Age: 62 Year
  Sex: Female

DRUGS (3)
  1. LEXOMIL (BROMAZEPAM) [Concomitant]
  2. ZOPICLONE (ZOPICLONE) [Concomitant]
  3. MIRTAZAPINE [Suspect]
     Indication: MAJOR DEPRESSION
     Dosage: (15 MG)

REACTIONS (7)
  - VERTIGO [None]
  - DRUG INEFFECTIVE [None]
  - ANXIETY [None]
  - CRYING [None]
  - NIGHTMARE [None]
  - INSOMNIA [None]
  - ARRHYTHMIA [None]
